FAERS Safety Report 14099948 (Version 1)
Quarter: 2017Q4

REPORT INFORMATION
  Report Type: Report from Study
  Country: US (occurrence: BR)
  Receive Date: 20171017
  Receipt Date: 20171017
  Transmission Date: 20180321
  Serious: Yes (Other)
  Sender: FDA-Public Use
  Company Number: US-SUNOVION-2017SUN004512

PATIENT
  Sex: Female

DRUGS (3)
  1. INDACATEROL AND GLYCOPYRROLATE [Suspect]
     Active Substance: GLYCOPYRROLATE\INDACATEROL MALEATE
     Indication: CHRONIC OBSTRUCTIVE PULMONARY DISEASE
     Dosage: 1 DF, 110/50 UG, QD
     Route: 055
  2. CLENIL [Concomitant]
     Active Substance: BECLOMETHASONE DIPROPIONATE
  3. ATROVENT [Concomitant]
     Active Substance: IPRATROPIUM BROMIDE

REACTIONS (3)
  - Upper limb fracture [Unknown]
  - Urinary incontinence [Unknown]
  - Mobility decreased [Unknown]
